FAERS Safety Report 4502344-1 (Version None)
Quarter: 2004Q4

REPORT INFORMATION
  Report Type: 
  Country: None (occurrence: None)
  Receive Date: 20041110
  Receipt Date: 20041101
  Transmission Date: 20050328
  Serious: Yes (Hospitalization)
  Sender: FDA-Public Use
  Company Number: STA-AE-04-MTX-527

PATIENT
  Age: 45 Year

DRUGS (4)
  1. METHOTREXATE [Suspect]
     Indication: NAIL PSORIASIS
     Dosage: 25 MG 1X PER 1 WK, ORAL
     Route: 048
  2. METHOTREXATE [Suspect]
     Indication: PSORIASIS
     Dosage: 25 MG 1X PER 1 WK, ORAL
     Route: 048
  3. REMICADE [Suspect]
     Indication: NAIL PSORIASIS
     Dosage: INTRAVENOUS
     Route: 042
  4. REMICADE [Suspect]
     Indication: PSORIASIS
     Dosage: INTRAVENOUS
     Route: 042

REACTIONS (5)
  - DISEASE RECURRENCE [None]
  - DRUG INEFFECTIVE [None]
  - NAIL PSORIASIS [None]
  - PERINEAL ABSCESS [None]
  - PSORIASIS [None]
